FAERS Safety Report 8435121-X (Version None)
Quarter: 2012Q2

REPORT INFORMATION
  Report Type: 
  Country: None (occurrence: None)
  Receive Date: 20120614
  Receipt Date: 20120611
  Transmission Date: 20120825
  Serious: Yes (Hospitalization)
  Sender: FDA-Public Use
  Company Number: PHHY2012HR049517

PATIENT
  Age: 71 Year
  Sex: Female

DRUGS (2)
  1. CARBAMAZEPINE [Suspect]
     Dosage: 400 MG, BID
  2. CARBAMAZEPINE [Suspect]
     Indication: COMPLEX PARTIAL SEIZURES
     Dosage: UNK UKN, UNK
     Dates: start: 19840101

REACTIONS (6)
  - SKIN EXFOLIATION [None]
  - PRURITUS [None]
  - RASH PAPULAR [None]
  - LYMPHOCYTE TRANSFORMATION TEST POSITIVE [None]
  - LICHEN PLANUS [None]
  - SKIN PLAQUE [None]
